FAERS Safety Report 20182389 (Version 2)
Quarter: 2021Q4

REPORT INFORMATION
  Report Type: Other
  Country: ES (occurrence: ES)
  Receive Date: 20211214
  Receipt Date: 20211228
  Transmission Date: 20220303
  Serious: Yes (Hospitalization)
  Sender: FDA-Public Use
  Company Number: None

PATIENT
  Age: 45 Year
  Sex: Female

DRUGS (4)
  1. DIAZEPAM [Suspect]
     Active Substance: DIAZEPAM
     Indication: Suicide attempt
     Route: 065
     Dates: start: 20200831, end: 20200831
  2. QUETIAPINE [Suspect]
     Active Substance: QUETIAPINE
     Indication: Suicide attempt
     Route: 065
     Dates: start: 20200831, end: 20200831
  3. TRAZODONE HYDROCHLORIDE [Suspect]
     Active Substance: TRAZODONE HYDROCHLORIDE
     Indication: Suicide attempt
     Route: 065
     Dates: start: 20200831, end: 20200831
  4. CLONAZEPAM [Suspect]
     Active Substance: CLONAZEPAM
     Indication: Suicide attempt
     Route: 065
     Dates: start: 20200831, end: 20200831

REACTIONS (2)
  - Depressed level of consciousness [Recovered/Resolved]
  - Respiratory failure [Recovered/Resolved]

NARRATIVE: CASE EVENT DATE: 20200831
